FAERS Safety Report 9010081 (Version 4)
Quarter: 2013Q1

REPORT INFORMATION
  Report Type: Report from Study
  Country: CA (occurrence: CA)
  Receive Date: 20130110
  Receipt Date: 20130125
  Transmission Date: 20140127
  Serious: Yes (Hospitalization)
  Sender: FDA-Public Use
  Company Number: CA-ABBOTT-13P-028-1032958-00

PATIENT
  Sex: Female
  Weight: 68.7 kg

DRUGS (1)
  1. HUMIRA [Suspect]
     Indication: CROHN^S DISEASE
     Route: 058
     Dates: start: 20080817

REACTIONS (2)
  - Hospitalisation [Not Recovered/Not Resolved]
  - Ulcer [Unknown]
